FAERS Safety Report 14945500 (Version 1)
Quarter: 2018Q2

REPORT INFORMATION
  Report Type: Spontaneous
  Country: FR (occurrence: FR)
  Receive Date: 20180529
  Receipt Date: 20180529
  Transmission Date: 20180711
  Serious: Yes (Other)
  Sender: FDA-Public Use
  Company Number: FR-AUROBINDO-AUR-APL-2018-027499

PATIENT
  Age: 39 Year
  Sex: Male

DRUGS (8)
  1. SOLUPRED                           /00016217/ [Concomitant]
     Active Substance: PREDNISOLONE
     Indication: PRODUCT USED FOR UNKNOWN INDICATION
     Dosage: UNK
     Route: 065
  2. VINCRISTINE HOSPIRA [Suspect]
     Active Substance: VINCRISTINE
     Indication: BRAIN NEOPLASM
     Dosage: UNK
     Route: 042
     Dates: start: 20170330, end: 20170330
  3. BELUSTINE [Suspect]
     Active Substance: LOMUSTINE
     Indication: BRAIN NEOPLASM
     Dosage: UNK
     Route: 048
     Dates: start: 20170323, end: 20170323
  4. DIFFU K [Concomitant]
     Active Substance: POTASSIUM CHLORIDE
     Indication: PRODUCT USED FOR UNKNOWN INDICATION
     Dosage: UNK
     Route: 065
  5. KEPPRA [Concomitant]
     Active Substance: LEVETIRACETAM
     Indication: PRODUCT USED FOR UNKNOWN INDICATION
     Dosage: UNK
     Route: 065
  6. LEXOMIL [Concomitant]
     Active Substance: BROMAZEPAM
     Indication: PRODUCT USED FOR UNKNOWN INDICATION
     Dosage: UNK
     Route: 065
  7. NATULAN [Suspect]
     Active Substance: PROCARBAZINE HYDROCHLORIDE
     Indication: BRAIN NEOPLASM
     Dosage: UNK
     Route: 048
     Dates: start: 20170323, end: 20170412
  8. AMOXICILLIN. [Suspect]
     Active Substance: AMOXICILLIN
     Indication: TOOTH AVULSION
     Dosage: UNK
     Route: 048
     Dates: start: 201703, end: 201704

REACTIONS (1)
  - Hepatocellular injury [Not Recovered/Not Resolved]

NARRATIVE: CASE EVENT DATE: 20170428
